FAERS Safety Report 7515302-X (Version None)
Quarter: 2011Q2

REPORT INFORMATION
  Report Type: 
  Country: None (occurrence: None)
  Receive Date: 20110601
  Receipt Date: 20110526
  Transmission Date: 20111010
  Serious: Yes (Hospitalization, Other)
  Sender: FDA-Public Use
  Company Number: US-ELI_LILLY_AND_COMPANY-US201105007979

PATIENT
  Age: 46 Year
  Sex: Female

DRUGS (2)
  1. EFFIENT [Suspect]
     Indication: CORONARY ARTERY DISEASE
     Dosage: 10 MG, QD
     Dates: start: 20110401, end: 20110501
  2. LISINOPRIL [Concomitant]

REACTIONS (1)
  - ANAPHYLACTIC SHOCK [None]
